FAERS Safety Report 7574114-1 (Version None)
Quarter: 2011Q2

REPORT INFORMATION
  Report Type: 
  Country: None (occurrence: None)
  Receive Date: 20110627
  Receipt Date: 20110614
  Transmission Date: 20111010
  Serious: Yes (Other)
  Sender: FDA-Public Use
  Company Number: PHHY2010US76147

PATIENT
  Sex: Male

DRUGS (2)
  1. GLEEVEC [Suspect]
     Indication: CHRONIC MYELOID LEUKAEMIA
     Dosage: 200 MG, BID
     Route: 048
     Dates: start: 20101006
  2. MULTI-VITAMINS [Concomitant]

REACTIONS (8)
  - THYROID NEOPLASM [None]
  - WEIGHT DECREASED [None]
  - THORACIC VERTEBRAL FRACTURE [None]
  - FATIGUE [None]
  - ROAD TRAFFIC ACCIDENT [None]
  - MUSCULOSKELETAL STIFFNESS [None]
  - PERIORBITAL OEDEMA [None]
  - PAIN IN EXTREMITY [None]
